FAERS Safety Report 18480504 (Version 1)
Quarter: 2020Q4

REPORT INFORMATION
  Report Type: Spontaneous
  Country: US (occurrence: US)
  Receive Date: 20201109
  Receipt Date: 20201109
  Transmission Date: 20210114
  Serious: Yes (Other)
  Sender: FDA-Public Use
  Company Number: None

PATIENT
  Age: 22 Year
  Sex: Male
  Weight: 86.2 kg

DRUGS (13)
  1. REMDESIVIR. [Suspect]
     Active Substance: REMDESIVIR
     Indication: COVID-19
     Route: 040
     Dates: start: 20200801, end: 20200804
  2. ACETAMINOPHEN 650 MG ORAL [Concomitant]
     Dates: start: 20200731
  3. AZITHROMYCIN 500 MG IV [Concomitant]
     Dates: start: 20200731, end: 20200804
  4. FAMOTIDINE 40 MG ORAL PRN [Concomitant]
     Dates: start: 20200801, end: 20200801
  5. BISMUTH SUBSALICYLATE 524 MG PRN [Concomitant]
     Dates: start: 20200801, end: 20200802
  6. CEFTRIAXONE 2 GM IV [Concomitant]
     Dates: start: 20200731, end: 20200804
  7. MELATONIN 3 MG ORAL [Concomitant]
     Dates: start: 20200731, end: 20200731
  8. ENOXAPARIN 80 MG SQ INJ [Concomitant]
     Dates: start: 20200731, end: 20200804
  9. REMDESIVIR. [Suspect]
     Active Substance: REMDESIVIR
     Indication: COVID-19
     Dosage: ?          OTHER FREQUENCY:1X LOADING DOSE;?
     Route: 040
     Dates: start: 20200731, end: 20200731
  10. DEXAMETHASONE 6 MG IV [Concomitant]
     Dates: start: 20200731, end: 20200804
  11. TRAZODONE 100 MG ORAL [Concomitant]
     Dates: start: 20200801, end: 20200803
  12. ZOLPIDEM [Concomitant]
     Active Substance: ZOLPIDEM TARTRATE
     Dates: start: 20200731, end: 20200731
  13. PSEUDOEPHEDRINE 30 MG ORAL PRN [Concomitant]
     Dates: start: 20200803, end: 20200803

REACTIONS (1)
  - Liver function test increased [None]

NARRATIVE: CASE EVENT DATE: 20200804
